FAERS Safety Report 7395089-4 (Version None)
Quarter: 2011Q2

REPORT INFORMATION
  Report Type: 
  Country: None (occurrence: None)
  Receive Date: 20110405
  Receipt Date: 20110323
  Transmission Date: 20111010
  Serious: Yes (Hospitalization)
  Sender: FDA-Public Use
  Company Number: FR-PFIZER INC-FR-WYE-G06217610

PATIENT
  Age: 77 Year
  Sex: Female
  Weight: 92 kg

DRUGS (9)
  1. ACETAMINOPHEN AND TRAMADOL HCL [Concomitant]
     Route: 048
  2. VOLTAREN [Concomitant]
     Route: 065
  3. TAZOCILLINE [Suspect]
     Dosage: UNKNOWN
     Route: 042
     Dates: start: 20100325, end: 20100402
  4. CYSTINE B6 BAILLEUL [Concomitant]
     Route: 048
  5. FLUCONAZOLE [Concomitant]
     Dosage: UNK
     Route: 065
     Dates: start: 20100320, end: 20100409
  6. ZYVOX [Suspect]
     Dosage: UNK
     Route: 042
     Dates: start: 20100325, end: 20100402
  7. COKENZEN [Concomitant]
     Route: 048
  8. NEXIUM [Concomitant]
     Route: 065
  9. ZANIDIP [Concomitant]
     Route: 048

REACTIONS (2)
  - HEPATIC FIBROSIS [None]
  - HEPATITIS TOXIC [None]
